FAERS Safety Report 8327275-0 (Version None)
Quarter: 2012Q2

REPORT INFORMATION
  Report Type: 
  Country: None (occurrence: None)
  Receive Date: 20120502
  Receipt Date: 20120418
  Transmission Date: 20120825
  Serious: Yes (Hospitalization, Other)
  Sender: FDA-Public Use
  Company Number: SE-AMGEN-SWESP2011044847

PATIENT
  Age: 53 Year
  Sex: Female
  Weight: 55 kg

DRUGS (7)
  1. ENBREL [Suspect]
     Indication: RHEUMATOID ARTHRITIS
     Dosage: 50 MG, WEEKLY
     Route: 058
     Dates: start: 19990927, end: 20081013
  2. ZOLPIDEM TARTRATE [Concomitant]
     Dosage: 10 MG, 1X/DAY
     Dates: start: 20010522
  3. ALVEDON [Concomitant]
     Dosage: 1000 MG, AS NEEDED
     Dates: start: 19970203
  4. PREDNISOLONE [Concomitant]
     Dosage: UNK
  5. CALCICHEW-D3 [Concomitant]
     Dosage: TWO TABLETS, EVENING
     Dates: start: 20001128
  6. TRAMADOL HCL [Concomitant]
     Dosage: 100 MG, 1X/DAY
     Dates: start: 19980715
  7. EBASTINE [Concomitant]
     Dosage: 10 MG, 1X/DAY
     Dates: start: 20040621

REACTIONS (2)
  - PROCTITIS ULCERATIVE [None]
  - CROHN'S DISEASE [None]
